FAERS Safety Report 7460828-0 (Version None)
Quarter: 2011Q2

REPORT INFORMATION
  Report Type: 
  Country: None (occurrence: None)
  Receive Date: 20110505
  Receipt Date: 20110426
  Transmission Date: 20111010
  Serious: Yes (Hospitalization, Other)
  Sender: FDA-Public Use
  Company Number: BE-ELI_LILLY_AND_COMPANY-BE201104000238

PATIENT
  Age: 55 Year
  Sex: Female

DRUGS (5)
  1. CISPLATIN [Concomitant]
     Indication: NON-SMALL CELL LUNG CANCER
  2. VIT B12 [Concomitant]
  3. ALIMTA [Suspect]
     Indication: NON-SMALL CELL LUNG CANCER
     Dosage: UNK, UNKNOWN
     Route: 065
     Dates: start: 20110301
  4. FOLIC ACID [Concomitant]
  5. METHYLPREDNISOLONE [Concomitant]

REACTIONS (5)
  - POLYURIA [None]
  - URTICARIA [None]
  - ERYTHEMA [None]
  - HYPERSENSITIVITY [None]
  - BRONCHOSPASM [None]
